FAERS Safety Report 26025414 (Version 2)
Quarter: 2025Q4

REPORT INFORMATION
  Report Type: Spontaneous
  Country: AU (occurrence: AU)
  Receive Date: 20251111
  Receipt Date: 20251118
  Transmission Date: 20260118
  Serious: Yes (Other)
  Sender: ROCHE
  Company Number: AU-ROCHE-10000414841

PATIENT
  Sex: Female

DRUGS (1)
  1. OCREVUS [Suspect]
     Active Substance: OCRELIZUMAB
     Indication: Product used for unknown indication
     Dosage: MOST RECENT INFUSION ON 03-OCT-2025
     Route: 050

REACTIONS (2)
  - Mouth ulceration [Recovering/Resolving]
  - Neutropenia [Recovering/Resolving]
